FAERS Safety Report 8163169-1 (Version None)
Quarter: 2012Q1

REPORT INFORMATION
  Report Type: 
  Country: None (occurrence: None)
  Receive Date: 20120224
  Receipt Date: 20110304
  Transmission Date: 20120608
  Serious: No
  Sender: FDA-Public Use
  Company Number: US-PFIZER INC-K201100237

PATIENT
  Age: 28 Year
  Sex: Male

DRUGS (2)
  1. FLECTOR [Suspect]
     Indication: MUSCULOSKELETAL PAIN
     Dosage: 1 PATCH, SINGLE
     Route: 061
     Dates: start: 20110303, end: 20110303
  2. RELAFEN [Concomitant]
     Indication: COSTOCHONDRITIS
     Dosage: UNK

REACTIONS (3)
  - APPLICATION SITE SWELLING [None]
  - HYPERSENSITIVITY [None]
  - APPLICATION SITE INFLAMMATION [None]
